FAERS Safety Report 25139395 (Version 1)
Quarter: 2025Q1

REPORT INFORMATION
  Report Type: Spontaneous
  Country: US (occurrence: US)
  Receive Date: 20250331
  Receipt Date: 20250331
  Transmission Date: 20250409
  Serious: Yes (Other)
  Sender: PIRAMAL
  Company Number: US-PIRAMAL CRITICAL CARE LIMITED-2025-PPL-000180

PATIENT

DRUGS (2)
  1. GABLOFEN [Suspect]
     Active Substance: BACLOFEN
     Indication: Spinal pain
     Route: 037
  2. BUPIVACAINE [Suspect]
     Active Substance: BUPIVACAINE
     Indication: Spinal pain
     Route: 037

REACTIONS (2)
  - Granuloma [Recovered/Resolved]
  - Product use in unapproved indication [Unknown]
